FAERS Safety Report 4699026-2 (Version None)
Quarter: 2005Q2

REPORT INFORMATION
  Report Type: 
  Country: None (occurrence: None)
  Receive Date: 20050623
  Receipt Date: 20050623
  Transmission Date: 20051028
  Serious: Yes (Life-Threatening)
  Sender: FDA-Public Use
  Company Number: None

PATIENT
  Sex: Male
  Weight: 120.6568 kg

DRUGS (18)
  1. AVASTIN [Suspect]
     Indication: COLON CANCER
     Dosage: 600 MG IV Q  2 WK
     Route: 042
     Dates: start: 20050412
  2. AVASTIN [Suspect]
     Indication: COLON CANCER
     Dosage: 600 MG IV Q  2 WK
     Route: 042
     Dates: start: 20050425
  3. AVASTIN [Suspect]
     Indication: COLON CANCER
     Dosage: 600 MG IV Q  2 WK
     Route: 042
     Dates: start: 20050509
  4. AVASTIN [Suspect]
     Indication: COLON CANCER
     Dosage: 600 MG IV Q  2 WK
     Route: 042
     Dates: start: 20050523
  5. AVASTIN [Suspect]
     Indication: COLON CANCER
     Dosage: 600 MG IV Q  2 WK
     Route: 042
     Dates: start: 20050606
  6. ZESTRIL [Concomitant]
  7. GLYBURIDE [Concomitant]
  8. M.V.I. [Concomitant]
  9. METFORMIN [Concomitant]
  10. LISINOPRIL [Concomitant]
  11. HYDROCHLOROTHIAZIDE [Concomitant]
  12. SIMVASTIN [Concomitant]
  13. ROSIGLITAZONE [Concomitant]
  14. COUMADIN [Concomitant]
  15. COMPAZINE [Concomitant]
  16. TUSSINEX [Concomitant]
  17. METFORMIN/GLYBURIDE 500/25 [Concomitant]
  18. IMODIUM [Concomitant]

REACTIONS (1)
  - PULMONARY EMBOLISM [None]
